FAERS Safety Report 8157512-7 (Version None)
Quarter: 2012Q1

REPORT INFORMATION
  Report Type: 
  Country: None (occurrence: None)
  Receive Date: 20120222
  Receipt Date: 20120217
  Transmission Date: 20120608
  Serious: Yes (Hospitalization, Other)
  Sender: FDA-Public Use
  Company Number: BR-PFIZER INC-2012043528

PATIENT
  Age: 67 Year
  Sex: Female

DRUGS (2)
  1. COMBIGAN [Concomitant]
     Dosage: UNK
  2. XALATAN [Suspect]
     Indication: GLAUCOMA
     Dosage: 3 UG (TWO DROPS), 2X/DAY
     Route: 047
     Dates: start: 20080217

REACTIONS (1)
  - GLAUCOMA [None]
